FAERS Safety Report 10786056 (Version 1)
Quarter: 2015Q1

REPORT INFORMATION
  Report Type: Spontaneous
  Country: US (occurrence: US)
  Receive Date: 20150211
  Receipt Date: 20150211
  Transmission Date: 20150721
  Serious: No
  Sender: FDA-Public Use
  Company Number: US-SHIRE-US201501066

PATIENT
  Age: 8 Year
  Sex: Female

DRUGS (2)
  1. INTUNIV [Suspect]
     Active Substance: GUANFACINE HYDROCHLORIDE
     Indication: PRODUCT USED FOR UNKNOWN INDICATION
     Dosage: UNK, 1X/DAY:QD (CRUSHED 1/2 OF A 3 MG TABLET IN THE MORNING)
     Route: 048
  2. INTUNIV [Suspect]
     Active Substance: GUANFACINE HYDROCHLORIDE
     Dosage: 3 MG, 1X/DAY:QD
     Route: 048

REACTIONS (3)
  - Wrong technique in drug usage process [Unknown]
  - Incorrect dose administered [Unknown]
  - No adverse event [Unknown]
